FAERS Safety Report 25424088 (Version 3)
Quarter: 2025Q4

REPORT INFORMATION
  Report Type: Report from Study
  Country: US (occurrence: US)
  Receive Date: 20250611
  Receipt Date: 20251211
  Transmission Date: 20260118
  Serious: Yes (Other)
  Sender: TRAVERE THERAPEUTICS
  Company Number: US-TRAVERE-2025TVT00834

PATIENT
  Age: 61 Year
  Sex: Male

DRUGS (4)
  1. FILSPARI [Suspect]
     Active Substance: SPARSENTAN
     Indication: IgA nephropathy
     Route: 048
     Dates: start: 202504
  2. FILSPARI [Suspect]
     Active Substance: SPARSENTAN
     Route: 048
     Dates: start: 202504
  3. METOPROLOL [Concomitant]
     Active Substance: METOPROLOL
     Indication: Hypertension
  4. FARXIGA [Concomitant]
     Active Substance: DAPAGLIFLOZIN PROPANEDIOL
     Indication: IgA nephropathy

REACTIONS (5)
  - Glomerular filtration rate decreased [Recovering/Resolving]
  - Blood urea increased [Recovering/Resolving]
  - Blood creatinine increased [Recovering/Resolving]
  - Blood potassium increased [Unknown]
  - Cystatin C increased [Recovering/Resolving]

NARRATIVE: CASE EVENT DATE: 20250509
